FAERS Safety Report 4306774-2 (Version None)
Quarter: 2004Q1

REPORT INFORMATION
  Report Type: 
  Country: None (occurrence: None)
  Receive Date: 20040225
  Receipt Date: 20040206
  Transmission Date: 20041129
  Serious: Yes (Hospitalization)
  Sender: FDA-Public Use
  Company Number: USA040258693

PATIENT

DRUGS (2)
  1. GEMZAR [Suspect]
     Indication: NON-SMALL CELL LUNG CANCER
     Dates: start: 20031201
  2. CISPLATIN [Concomitant]

REACTIONS (3)
  - CELLULITIS [None]
  - DEEP VEIN THROMBOSIS [None]
  - PHLEBITIS [None]
